FAERS Safety Report 9833039 (Version 2)
Quarter: 2014Q1

REPORT INFORMATION
  Report Type: Spontaneous
  Country: FR (occurrence: FR)
  Receive Date: 20140121
  Receipt Date: 20140124
  Transmission Date: 20141002
  Serious: Yes (Hospitalization)
  Sender: FDA-Public Use
  Company Number: FR-PFIZER INC-2014015671

PATIENT
  Age: 85 Year
  Sex: Male

DRUGS (15)
  1. EUPANTOL [Suspect]
     Dosage: UNK
     Route: 048
     Dates: start: 20130930, end: 20131107
  2. BACTRIM [Suspect]
     Dosage: UNK
     Route: 048
     Dates: start: 20130925, end: 20131106
  3. CIFLOX [Suspect]
     Dosage: UNK
     Route: 042
     Dates: start: 20130826, end: 20131107
  4. CLAMOXYL [Suspect]
     Dosage: UNK
     Route: 048
     Dates: start: 20130825, end: 20131107
  5. COUMADINE [Suspect]
     Dosage: UNK
     Route: 048
     Dates: start: 20131029, end: 20131103
  6. DAFALGAN [Suspect]
     Dosage: UNK
     Route: 065
  7. METFORMINE ^MERCK^ [Concomitant]
  8. DIAMICRON [Concomitant]
  9. PRAVASTATINE ^SQUIBB^ [Concomitant]
  10. IRBESARTAN [Concomitant]
  11. BISOPROLOL [Concomitant]
  12. PARIET [Concomitant]
  13. KARDEGIC [Concomitant]
  14. IBUPROFEN [Concomitant]
  15. CORDARONE [Concomitant]
     Dosage: UNK
     Dates: end: 20131107

REACTIONS (1)
  - Drug reaction with eosinophilia and systemic symptoms [Recovered/Resolved]
